FAERS Safety Report 14306266 (Version 2)
Quarter: 2018Q1

REPORT INFORMATION
  Report Type: Spontaneous
  Country: FR (occurrence: FR)
  Receive Date: 20171219
  Receipt Date: 20180111
  Transmission Date: 20180509
  Serious: Yes (Hospitalization)
  Sender: FDA-Public Use
  Company Number: FR-MERCK KGAA-2037437

PATIENT
  Age: 38 Year
  Sex: Female
  Weight: 66 kg

DRUGS (1)
  1. NOVOTHYROX [Suspect]
     Active Substance: LEVOTHYROXINE SODIUM
     Indication: POST PROCEDURAL HYPOTHYROIDISM

REACTIONS (10)
  - Panic attack [None]
  - Sleep disorder [None]
  - Stress [Not Recovered/Not Resolved]
  - Irritability [None]
  - Fatigue [None]
  - Chills [None]
  - Palpitations [None]
  - Alopecia [None]
  - Weight increased [None]
  - Feeling of body temperature change [None]

NARRATIVE: CASE EVENT DATE: 2017
